FAERS Safety Report 11124424 (Version 1)
Quarter: 2015Q2

REPORT INFORMATION
  Report Type: Spontaneous
  Country: US (occurrence: None)
  Receive Date: 20150518
  Receipt Date: 20150518
  Transmission Date: 20150821
  Serious: Yes (Hospitalization, Other)
  Sender: FDA-Public Use
  Company Number: ADR-2015-00947

PATIENT
  Age: 47 Year
  Sex: Male

DRUGS (3)
  1. MORPHINE INTRATHECAL [Suspect]
     Active Substance: MORPHINE
  2. CLONIDINE INTRATHECAL 250 MCG/ML [Suspect]
     Active Substance: CLONIDINE
     Dosage: ^85^
  3. BACLOFEN INTRATHECAL [Suspect]
     Active Substance: BACLOFEN
     Indication: SPINAL PAIN
     Dosage: ^340^

REACTIONS (3)
  - Confusional state [None]
  - Chronic obstructive pulmonary disease [None]
  - Ammonia increased [None]
